APPROVED DRUG PRODUCT: AZO GANTANOL
Active Ingredient: PHENAZOPYRIDINE HYDROCHLORIDE; SULFAMETHOXAZOLE
Strength: 100MG;500MG **Federal Register determination that product was not discontinued or withdrawn for safety or effectiveness reasons**
Dosage Form/Route: TABLET;ORAL
Application: N013294 | Product #001
Applicant: HOFFMANN LA ROCHE INC
Approved: Sep 10, 1987 | RLD: Yes | RS: No | Type: DISCN